FAERS Safety Report 6594052-0 (Version None)
Quarter: 2010Q1

REPORT INFORMATION
  Report Type: 
  Country: None (occurrence: None)
  Receive Date: 20100218
  Receipt Date: 20100218
  Transmission Date: 20100710
  Serious: Yes (Hospitalization)
  Sender: FDA-Public Use
  Company Number: None

PATIENT
  Age: 54 Year
  Sex: Male
  Weight: 136.5 kg

DRUGS (1)
  1. EZETIMIBE [Suspect]
     Indication: PANCREATITIS ACUTE
     Dosage: 5 MG EVERY DAY PO
     Route: 048
     Dates: start: 20090609, end: 20091210

REACTIONS (2)
  - BLOOD TRIGLYCERIDES INCREASED [None]
  - PANCREATITIS ACUTE [None]
